FAERS Safety Report 9943923 (Version 2)
Quarter: 2014Q1

REPORT INFORMATION
  Report Type: Spontaneous
  Country: US (occurrence: US)
  Receive Date: 20140303
  Receipt Date: 20140303
  Transmission Date: 20141002
  Serious: No
  Sender: FDA-Public Use
  Company Number: US-GILEAD-2012-0060382

PATIENT
  Age: 85 Year
  Sex: Male
  Weight: 111.57 kg

DRUGS (2)
  1. RANEXA [Suspect]
     Indication: UNEVALUABLE EVENT
     Dosage: 500 MG, UNK
     Route: 048
     Dates: start: 20120710
  2. RANEXA [Suspect]
     Indication: ANGINA PECTORIS
     Dosage: 500 MG, UNK
     Route: 048
     Dates: start: 20120716

REACTIONS (3)
  - Oedema peripheral [Recovered/Resolved]
  - Lip swelling [Unknown]
  - Swelling face [Unknown]
